FAERS Safety Report 17821512 (Version 1)
Quarter: 2020Q2

REPORT INFORMATION
  Report Type: Report from Study
  Country: CA (occurrence: CA)
  Receive Date: 20200525
  Receipt Date: 20200525
  Transmission Date: 20200714
  Serious: Yes (Other)
  Sender: FDA-Public Use
  Company Number: PHHY2018CA046242

PATIENT
  Age: 62 Year
  Sex: Female

DRUGS (17)
  1. APO-LACTULOSE [Concomitant]
     Active Substance: LACTULOSE
     Indication: PRODUCT USED FOR UNKNOWN INDICATION
     Dosage: 30 ML, BID
     Route: 065
  2. MB 12 [Concomitant]
     Active Substance: METHYLCOBALAMIN
     Indication: PRODUCT USED FOR UNKNOWN INDICATION
     Dosage: 12000 UG, QD
     Route: 048
  3. PRO-QUETIAPINE [Concomitant]
     Indication: PRODUCT USED FOR UNKNOWN INDICATION
     Dosage: 25 MG, (2 TO 3 TABS/BEDTIME)
     Route: 048
  4. TRAMADOL. [Concomitant]
     Active Substance: TRAMADOL
     Indication: PRODUCT USED FOR UNKNOWN INDICATION
     Route: 065
  5. ZOVIRAX [Concomitant]
     Active Substance: ACYCLOVIR
     Indication: PRODUCT USED FOR UNKNOWN INDICATION
     Dosage: 4 TO 6 TIMES QD
     Route: 065
  6. ONDANSETRAN [Concomitant]
     Active Substance: ONDANSETRON HYDROCHLORIDE
     Indication: PRODUCT USED FOR UNKNOWN INDICATION
     Dosage: 8 MG, QD
     Route: 048
  7. PANTOPRAZOLE [Concomitant]
     Active Substance: PANTOPRAZOLE
     Indication: PRODUCT USED FOR UNKNOWN INDICATION
     Dosage: 40 MG, QD (AT BREAKFAST)
     Route: 048
  8. DIMENATE [Concomitant]
     Active Substance: DIMENHYDRINATE
     Indication: PRODUCT USED FOR UNKNOWN INDICATION
     Route: 065
  9. TEMODAL [Concomitant]
     Active Substance: TEMOZOLOMIDE
     Dosage: 20 MG, UNK
     Route: 048
  10. TEMODAL [Concomitant]
     Active Substance: TEMOZOLOMIDE
     Indication: PRODUCT USED FOR UNKNOWN INDICATION
     Dosage: 100 MG, QD
     Route: 048
  11. D-TABS [Concomitant]
     Active Substance: CHOLECALCIFEROL
     Indication: PRODUCT USED FOR UNKNOWN INDICATION
     Dosage: 10000 OT, QW
     Route: 048
  12. CAL-500 [Concomitant]
     Indication: PRODUCT USED FOR UNKNOWN INDICATION
     Dosage: 500 MG, QD (BREAKFAST)
     Route: 048
  13. SANDOSTATIN LAR DEPOT [Suspect]
     Active Substance: OCTREOTIDE ACETATE
     Indication: INSULINOMA
     Dosage: 50 MG, QMO (EVERY 4 WEEKS)
     Route: 030
     Dates: start: 20140627
  14. SANDOSTATIN [Suspect]
     Active Substance: OCTREOTIDE ACETATE
     Indication: INSULINOMA
     Dosage: 150 UG, BID
     Route: 058
     Dates: end: 2014
  15. QUETIAPINE TEVA [Concomitant]
     Active Substance: QUETIAPINE
     Indication: PRODUCT USED FOR UNKNOWN INDICATION
     Dosage: 200 MG, QD (ONCE AT BED TIME)
     Route: 048
  16. XELODA [Concomitant]
     Active Substance: CAPECITABINE
     Indication: PRODUCT USED FOR UNKNOWN INDICATION
     Dosage: 2 DF, BID (2 CAPS)
     Route: 048
  17. XELODA [Concomitant]
     Active Substance: CAPECITABINE
     Dosage: 150 MG, BID (2 CAPS)
     Route: 065

REACTIONS (22)
  - Pruritus [Unknown]
  - Acne [Unknown]
  - Nausea [Unknown]
  - Nasal congestion [Unknown]
  - Pain [Unknown]
  - Breast mass [Unknown]
  - Rash pruritic [Unknown]
  - Gait inability [Recovered/Resolved]
  - Erythema [Unknown]
  - Cough [Unknown]
  - Heart rate increased [Unknown]
  - Injection site pain [Unknown]
  - Breast cancer [Unknown]
  - Pyrexia [Recovered/Resolved]
  - Pyrexia [Unknown]
  - Blood glucose decreased [Unknown]
  - Second primary malignancy [Unknown]
  - Bronchitis [Unknown]
  - Fatigue [Unknown]
  - Gait disturbance [Unknown]
  - Sputum discoloured [Unknown]
  - Ear pain [Unknown]

NARRATIVE: CASE EVENT DATE: 20190905
